FAERS Safety Report 13430459 (Version 2)
Quarter: 2017Q2

REPORT INFORMATION
  Report Type: Spontaneous
  Country: US (occurrence: US)
  Receive Date: 20170412
  Receipt Date: 20170511
  Transmission Date: 20170830
  Serious: No
  Sender: FDA-Public Use
  Company Number: US-PFIZER INC-2017155601

PATIENT
  Age: 66 Year
  Sex: Female

DRUGS (1)
  1. XELJANZ XR [Suspect]
     Active Substance: TOFACITINIB CITRATE
     Indication: RHEUMATOID ARTHRITIS
     Dosage: 11 MG, DAILY
     Route: 048
     Dates: start: 201703, end: 20170506

REACTIONS (4)
  - Diarrhoea [Unknown]
  - Nausea [Unknown]
  - Peripheral swelling [Unknown]
  - Headache [Unknown]

NARRATIVE: CASE EVENT DATE: 201703
